FAERS Safety Report 24105891 (Version 2)
Quarter: 2024Q3

REPORT INFORMATION
  Report Type: Spontaneous
  Country: FR (occurrence: FR)
  Receive Date: 20240717
  Receipt Date: 20240730
  Transmission Date: 20241016
  Serious: Yes (Disabling)
  Sender: ALCON
  Company Number: None

PATIENT

DRUGS (2)
  1. CYCLOPENTOLATE [Suspect]
     Active Substance: CYCLOPENTOLATE
     Indication: Glaucoma
     Dosage: 1 DROP PER EYE, THEN A SECOND DROP 10 MIN LATER
     Dates: start: 20240530, end: 20240530
  2. PENTASA [Concomitant]
     Active Substance: MESALAMINE
     Indication: Product used for unknown indication
     Dosage: 2 G, GRANULES IN SINGLE-DOSE SACHET
     Route: 065

REACTIONS (2)
  - Visual impairment [Recovered/Resolved]
  - Photophobia [Recovered/Resolved]

NARRATIVE: CASE EVENT DATE: 20240530
